FAERS Safety Report 23816047 (Version 1)
Quarter: 2024Q2

REPORT INFORMATION
  Report Type: Spontaneous
  Country: US (occurrence: None)
  Receive Date: 20240503
  Receipt Date: 20240503
  Transmission Date: 20240716
  Serious: No
  Sender: FDA-Public Use
  Company Number: None

PATIENT
  Age: 77 Year
  Sex: Female
  Weight: 58.6 kg

DRUGS (2)
  1. CARBOPLATIN [Suspect]
     Active Substance: CARBOPLATIN
     Dates: end: 20240412
  2. TAXOL [Suspect]
     Active Substance: PACLITAXEL
     Dates: end: 20210412

REACTIONS (8)
  - Tachycardia [None]
  - Nausea [None]
  - Vomiting [None]
  - Diarrhoea [None]
  - Hypotension [None]
  - Back pain [None]
  - Asthenia [None]
  - Atrial fibrillation [None]

NARRATIVE: CASE EVENT DATE: 20240419
